FAERS Safety Report 24113577 (Version 1)
Quarter: 2024Q3

REPORT INFORMATION
  Report Type: Spontaneous
  Country: IT (occurrence: IT)
  Receive Date: 20240720
  Receipt Date: 20240720
  Transmission Date: 20241016
  Serious: Yes (Hospitalization)
  Sender: JOHNSON AND JOHNSON
  Company Number: IT-JNJFOC-20130803658

PATIENT
  Age: 56 Year
  Sex: Male

DRUGS (9)
  1. YONDELIS [Suspect]
     Active Substance: TRABECTEDIN
     Indication: Liposarcoma
     Dosage: CYCLE 1
     Route: 065
     Dates: start: 201204
  2. YONDELIS [Suspect]
     Active Substance: TRABECTEDIN
     Dosage: CYCLE 2
     Route: 065
  3. YONDELIS [Suspect]
     Active Substance: TRABECTEDIN
     Dosage: CYCLE 3
     Route: 065
  4. YONDELIS [Suspect]
     Active Substance: TRABECTEDIN
     Dosage: CYCLE 4
     Route: 065
  5. HERBALS [Interacting]
     Active Substance: HERBALS
     Indication: Product used for unknown indication
     Route: 065
  6. DEXAMETHASONE [Concomitant]
     Active Substance: DEXAMETHASONE
     Indication: Premedication
  7. PALONOSETRON [Concomitant]
     Active Substance: PALONOSETRON
     Indication: Premedication
  8. CHLORPHENIRAMINE MALEATE [Concomitant]
     Active Substance: CHLORPHENIRAMINE MALEATE
     Indication: Premedication
  9. GRANULOCYTE COLONY-STIMULATING FACTOR NOS [Concomitant]
     Active Substance: GRANULOCYTE COLONY-STIMULATING FACTOR NOS

REACTIONS (4)
  - Rhabdomyolysis [Recovering/Resolving]
  - Pancytopenia [Recovered/Resolved]
  - Hepatic enzyme increased [Recovered/Resolved]
  - Drug interaction [Recovered/Resolved]
